FAERS Safety Report 14842055 (Version 1)
Quarter: 2018Q2

REPORT INFORMATION
  Report Type: Spontaneous
  Country: KR (occurrence: KR)
  Receive Date: 20180503
  Receipt Date: 20180503
  Transmission Date: 20180711
  Serious: Yes (Other)
  Sender: FDA-Public Use
  Company Number: KR-IMPAX LABORATORIES, INC-2018-IPXL-01525

PATIENT
  Age: 47 Year
  Sex: Male

DRUGS (1)
  1. ALBENZA [Suspect]
     Active Substance: ALBENDAZOLE
     Indication: HELMINTHIC INFECTION
     Dosage: UNK
     Route: 065

REACTIONS (6)
  - Anaphylactic reaction [Unknown]
  - Pruritus [Unknown]
  - Dyspnoea [Unknown]
  - Tremor [Unknown]
  - Rash [Unknown]
  - Hypotension [Unknown]
